FAERS Safety Report 18658165 (Version 1)
Quarter: 2020Q4

REPORT INFORMATION
  Report Type: Spontaneous
  Country: FR (occurrence: FR)
  Receive Date: 20201223
  Receipt Date: 20201223
  Transmission Date: 20210114
  Serious: Yes (Life-Threatening)
  Sender: FDA-Public Use
  Company Number: FR-NOVOPROD-774176

PATIENT
  Age: 44 Year
  Sex: Male
  Weight: 82.4 kg

DRUGS (13)
  1. NEO-MERCAZOLE [Suspect]
     Active Substance: CARBIMAZOLE
     Indication: HYPERTHYROIDISM
     Dosage: 5 MG, QD
     Route: 048
     Dates: end: 20201126
  2. TRULICITY [Suspect]
     Active Substance: DULAGLUTIDE
     Indication: TYPE 2 DIABETES MELLITUS
     Dosage: 1 DF, QW
     Route: 058
     Dates: end: 20201126
  3. TAHOR [Suspect]
     Active Substance: ATORVASTATIN CALCIUM
     Indication: HYPERCHOLESTEROLAEMIA
     Dosage: 10 MG, QD
     Route: 048
     Dates: end: 20201126
  4. AERIUS [EBASTINE] [Suspect]
     Active Substance: EBASTINE
     Indication: PRODUCT USED FOR UNKNOWN INDICATION
     Dosage: 5 MG, QD
     Route: 048
     Dates: end: 20201126
  5. MOVICOL [Suspect]
     Active Substance: POLYETHYLENE GLYCOL 3350\POTASSIUM CHLORIDE\SODIUM BICARBONATE\SODIUM CHLORIDE
     Indication: CONSTIPATION
     Dosage: 1 DF, QD
     Route: 048
     Dates: start: 20201109, end: 20201126
  6. ACTISKENAN [Suspect]
     Active Substance: MORPHINE SULFATE
     Indication: SCIATICA
     Dosage: 20 MG, QD
     Route: 048
     Dates: start: 20201107, end: 20201126
  7. SPASMAG [MAGNESIUM SULFATE\SACCHAROMYCES CEREVISIAE] [Suspect]
     Active Substance: MAGNESIUM SULFATE\SACCHAROMYCES CEREVISIAE
     Indication: PRODUCT USED FOR UNKNOWN INDICATION
     Dosage: 2 DF, QD
     Route: 048
     Dates: end: 20201126
  8. DICLOFENAC [Suspect]
     Active Substance: DICLOFENAC
     Indication: PAIN
     Dosage: 2 DF, QD
     Route: 003
     Dates: start: 20201118, end: 20201126
  9. ALPRAZOLAM. [Suspect]
     Active Substance: ALPRAZOLAM
     Indication: PRODUCT USED FOR UNKNOWN INDICATION
     Dosage: UNK
     Route: 048
     Dates: start: 20201126, end: 20201126
  10. PARACETAMOL [Suspect]
     Active Substance: ACETAMINOPHEN
     Indication: PAIN
     Dosage: 1 G
     Route: 048
     Dates: end: 20201126
  11. SKENAN [Suspect]
     Active Substance: MORPHINE SULFATE
     Indication: SCIATICA
     Dosage: 20 MG, QD
     Route: 048
     Dates: start: 20201108, end: 20201126
  12. ACTRAPID [Suspect]
     Active Substance: INSULIN HUMAN
     Indication: TYPE 2 DIABETES MELLITUS
     Dosage: 12 IU, QD
     Route: 058
     Dates: end: 20201126
  13. STAGID [Suspect]
     Active Substance: METFORMIN PAMOATE
     Indication: TYPE 2 DIABETES MELLITUS
     Dosage: 2100 MG, QD
     Route: 048
     Dates: end: 20201126

REACTIONS (6)
  - Acute kidney injury [Recovered/Resolved]
  - Coma [Recovered/Resolved]
  - Rhabdomyolysis [Recovered/Resolved]
  - Poisoning deliberate [Recovered/Resolved]
  - Pneumonia aspiration [Recovering/Resolving]
  - Miosis [Recovered/Resolved]

NARRATIVE: CASE EVENT DATE: 20201126
